FAERS Safety Report 21667844 (Version 1)
Quarter: 2022Q4

REPORT INFORMATION
  Report Type: Spontaneous
  Country: US (occurrence: US)
  Receive Date: 20221201
  Receipt Date: 20221201
  Transmission Date: 20230112
  Serious: Yes (Death, Other)
  Sender: FDA-Public Use
  Company Number: US-AMGEN-USASP2022205949

PATIENT
  Age: 74 Year
  Sex: Female

DRUGS (3)
  1. BEVACIZUMAB [Suspect]
     Active Substance: BEVACIZUMAB
     Indication: Squamous cell carcinoma of the vulva
     Dosage: UNK
     Route: 065
  2. CISPLATIN [Concomitant]
     Active Substance: CISPLATIN
     Indication: Squamous cell carcinoma of the vulva
     Dosage: UNK
     Route: 065
  3. PACLITAXEL [Concomitant]
     Active Substance: PACLITAXEL
     Indication: Squamous cell carcinoma of the vulva
     Dosage: UNK
     Route: 065

REACTIONS (8)
  - Death [Fatal]
  - Postoperative wound infection [Unknown]
  - Extraskeletal osteosarcoma [Unknown]
  - Procedural haemorrhage [Unknown]
  - Tumour haemorrhage [Unknown]
  - Drug intolerance [Unknown]
  - Postoperative wound complication [Unknown]
  - Off label use [Unknown]
